FAERS Safety Report 6044511-4 (Version None)
Quarter: 2009Q1

REPORT INFORMATION
  Report Type: 
  Country: None (occurrence: None)
  Receive Date: 20090120
  Receipt Date: 20090115
  Transmission Date: 20090719
  Serious: Yes (Other)
  Sender: FDA-Public Use
  Company Number: PT-AMGEN-UK319328

PATIENT
  Sex: Male
  Weight: 64 kg

DRUGS (2)
  1. ARANESP [Suspect]
     Indication: ANAEMIA
     Route: 042
     Dates: start: 20030303
  2. ENALAPRIL MALEATE [Concomitant]
     Route: 048
     Dates: end: 20080806

REACTIONS (1)
  - APLASIA PURE RED CELL [None]
